FAERS Safety Report 5378667-3 (Version None)
Quarter: 2007Q3

REPORT INFORMATION
  Report Type: 
  Country: None (occurrence: None)
  Receive Date: 20070702
  Receipt Date: 20070702
  Transmission Date: 20080115
  Serious: Yes (Other)
  Sender: FDA-Public Use
  Company Number: None

PATIENT
  Age: 65 Year
  Sex: Female
  Weight: 47.1741 kg

DRUGS (1)
  1. FOSAMAX [Suspect]
     Indication: OSTEOPOROSIS
     Dosage: 1 TABLET 1 X/WK PO
     Route: 048
     Dates: start: 20070315, end: 20070430

REACTIONS (6)
  - ARTHRALGIA [None]
  - BONE DISORDER [None]
  - GAIT DISTURBANCE [None]
  - JAW DISORDER [None]
  - MYALGIA [None]
  - OEDEMA PERIPHERAL [None]
